FAERS Safety Report 8851713 (Version 1)
Quarter: 2012Q4

REPORT INFORMATION
  Report Type: Spontaneous
  Country: US (occurrence: None)
  Receive Date: 20121017
  Receipt Date: 20121017
  Transmission Date: 20130627
  Serious: Yes (Other)
  Sender: FDA-Public Use
  Company Number: ENT 2012-0138

PATIENT
  Age: 72 Year
  Sex: Female

DRUGS (17)
  1. COMTAN (COMTESS) (ENTACAPONE) [Suspect]
     Indication: PARKINSON^S DISEASE
     Dosage: 200 mg, 2.5 (full in the morning and half pill three times) daily, oral
     Route: 048
     Dates: end: 1998
  2. ENALAPRIL MALEATE [Suspect]
     Indication: BLOOD PRESSURE
  3. OMEPRAZOLE (OMEPRAZOLE) [Suspect]
     Indication: ACID REFLUX
  4. SIMVASTATIN (SIMVASTATIN) [Suspect]
     Indication: CHOLESTEROL
  5. TRAZODONE [Suspect]
     Indication: DEPRESSION
  6. METOPROLOL SUCCINATE [Suspect]
     Indication: BLOOD PRESSURE
  7. LEVODOPA/CARBIDOPA [Suspect]
     Indication: PARKINSON^S DISEASE
     Route: 048
  8. LEVOTHYROXINE [Suspect]
     Indication: THYROID DISORDER
  9. DETROL LA [Suspect]
     Indication: BLADDER DISORDER
  10. COENZYME A [Suspect]
     Indication: PARKINSON^S DISEASE
  11. ASPIRIN [Concomitant]
  12. CITRUCEL [Concomitant]
  13. DOCUSATE SODIUM (DOCUSATE SODIUM) [Concomitant]
  14. MULTIVITAMIN (VITAMINS NOS) [Concomitant]
  15. FISH OIL (FISH OIL) [Concomitant]
  16. CALCIUM WITH MAGNESIUM AND VITAMIN D [Concomitant]
  17. OCCUGAURD PLUS [Concomitant]

REACTIONS (11)
  - Restless legs syndrome [None]
  - Feeling abnormal [None]
  - Drooling [None]
  - Disturbance in attention [None]
  - Gastric disorder [None]
  - Oesophageal disorder [None]
  - Hallucination [None]
  - Abnormal dreams [None]
  - Drug dose omission [None]
  - Feeling cold [None]
  - Tremor [None]
